FAERS Safety Report 6102441-3 (Version None)
Quarter: 2009Q1

REPORT INFORMATION
  Report Type: 
  Country: None (occurrence: None)
  Receive Date: 20090304
  Receipt Date: 20090223
  Transmission Date: 20090719
  Serious: Yes (Death)
  Sender: FDA-Public Use
  Company Number: BY-ROCHE-617320

PATIENT
  Sex: Male
  Weight: 80 kg

DRUGS (8)
  1. DIAZEPAM [Suspect]
     Indication: ANALGESIC THERAPY
     Dosage: DOSE: 2 MG/ 0.5% SOLUTION.
     Route: 042
     Dates: start: 20081010, end: 20081010
  2. BLINDED CANGRELOR [Suspect]
     Indication: PERCUTANEOUS CORONARY INTERVENTION
     Route: 042
     Dates: start: 20081010, end: 20081010
  3. CLOPIDOGREL [Suspect]
     Indication: PERCUTANEOUS CORONARY INTERVENTION
     Route: 048
     Dates: start: 20081010, end: 20081010
  4. MORPHINE [Suspect]
     Indication: ANALGESIA
     Route: 030
     Dates: start: 20081010, end: 20081010
  5. HEPARIN [Concomitant]
     Dates: start: 20081010, end: 20081010
  6. CONCOR [Concomitant]
     Dates: start: 20081010, end: 20081010
  7. NITROGLYCERIN [Concomitant]
     Dates: start: 20081010, end: 20081010
  8. ACETYLSALICYLIC ACID [Concomitant]
     Dates: start: 20081010, end: 20081010

REACTIONS (1)
  - CARDIAC FAILURE [None]
